FAERS Safety Report 23894805 (Version 2)
Quarter: 2024Q2

REPORT INFORMATION
  Report Type: Spontaneous
  Country: ES (occurrence: ES)
  Receive Date: 20240524
  Receipt Date: 20240607
  Transmission Date: 20240715
  Serious: Yes (Hospitalization)
  Sender: FDA-Public Use
  Company Number: ES-GRUNENTHAL-2024-120443

PATIENT
  Age: 65 Year
  Sex: Male

DRUGS (11)
  1. FENTANYL [Suspect]
     Active Substance: FENTANYL\FENTANYL CITRATE
     Indication: Pain
     Dosage: 200 MICROGRAM, 1/DAY
     Route: 048
  2. CAPSAICIN [Suspect]
     Active Substance: CAPSAICIN
     Indication: Pain
     Dosage: UNK
     Route: 003
  3. FENTANYL [Concomitant]
     Active Substance: FENTANYL\FENTANYL CITRATE
     Indication: Pain
     Dosage: 100 MICROGRAM
     Route: 062
  4. PREGABALIN [Concomitant]
     Active Substance: PREGABALIN
     Indication: Pain
     Dosage: 300 MILLIGRAM, 1/DAY
     Route: 065
  5. DULOXETINE [Concomitant]
     Active Substance: DULOXETINE
     Indication: Pain
     Dosage: 60 MILLIGRAM, 1/DAY
     Route: 065
  6. ACETAMINOPHEN [Concomitant]
     Active Substance: ACETAMINOPHEN
     Indication: Pain
     Dosage: 600 MILLIGRAM
     Route: 065
  7. MORPHINE [Concomitant]
     Active Substance: MORPHINE
     Indication: Pain
     Dosage: 440 MILLIGRAM
     Route: 065
  8. ZICONOTIDE [Concomitant]
     Active Substance: ZICONOTIDE
     Indication: Pain
     Dosage: 0.5 MICROGRAM, 1/DAY
     Route: 037
  9. ZICONOTIDE [Concomitant]
     Active Substance: ZICONOTIDE
     Dosage: 3.5 MICROGRAM, 1/DAY
     Route: 037
  10. ZICONOTIDE [Concomitant]
     Active Substance: ZICONOTIDE
     Dosage: 3 MICROGRAM, 1/DAY
     Route: 037
  11. ZICONOTIDE [Concomitant]
     Active Substance: ZICONOTIDE
     Dosage: 4 MICROGRAM, 1/DAY
     Route: 037

REACTIONS (3)
  - Respiratory failure [Unknown]
  - Overdose [Unknown]
  - Drug ineffective [Unknown]
